FAERS Safety Report 10036505 (Version 3)
Quarter: 2014Q2

REPORT INFORMATION
  Report Type: Report from Study
  Country: CA (occurrence: CA)
  Receive Date: 20140326
  Receipt Date: 20140506
  Transmission Date: 20141212
  Serious: Yes (Hospitalization)
  Sender: FDA-Public Use
  Company Number: PHHY2014CA021145

PATIENT
  Age: 88 Year
  Sex: Female

DRUGS (2)
  1. SANDOSTATIN LAR [Suspect]
     Indication: CARCINOID TUMOUR
     Dosage: 50 MG, QMO
     Route: 030
     Dates: start: 20070125
  2. SANDOSTATIN LAR [Suspect]
     Dosage: 50 MG, QMO
     Route: 030
     Dates: start: 20140303

REACTIONS (3)
  - Intestinal obstruction [Unknown]
  - Underdose [Unknown]
  - Hypoacusis [Unknown]
